FAERS Safety Report 5360326-4 (Version None)
Quarter: 2007Q2

REPORT INFORMATION
  Report Type: 
  Country: None (occurrence: None)
  Receive Date: 20070618
  Receipt Date: 20070606
  Transmission Date: 20071010
  Serious: Yes (Other)
  Sender: FDA-Public Use
  Company Number: BR-ROCHE-501101

PATIENT
  Age: 63 Year
  Sex: Male
  Weight: 73 kg

DRUGS (2)
  1. RIVOTRIL [Suspect]
     Indication: ESSENTIAL TREMOR
     Dosage: START DATE: 2007
     Route: 048
  2. PROPRANOLOL [Concomitant]
     Indication: HYPERTENSION
     Route: 048

REACTIONS (2)
  - CONVULSION [None]
  - HEADACHE [None]
